FAERS Safety Report 23618425 (Version 1)
Quarter: 2024Q1

REPORT INFORMATION
  Report Type: Spontaneous
  Country: FR (occurrence: FR)
  Receive Date: 20240311
  Receipt Date: 20240311
  Transmission Date: 20240410
  Serious: Yes (Other)
  Sender: FDA-Public Use
  Company Number: None

PATIENT
  Age: 60 Year
  Sex: Female

DRUGS (3)
  1. DOXORUBICIN [Suspect]
     Active Substance: DOXORUBICIN
     Indication: Breast cancer metastatic
     Dosage: 300 MG/M2, IN 6 COURSES
     Route: 042
     Dates: start: 20230426, end: 20230913
  2. ENHERTU [Suspect]
     Active Substance: FAM-TRASTUZUMAB DERUXTECAN-NXKI
     Indication: Breast cancer metastatic
     Dosage: 1 DOSAGE FORM, ONCE CYCLICAL, DOSAGE FORM: POWDER FOR SOLUTION TO DILUTE FOR PERFUSION (MAMMAL/HAMST
     Route: 042
     Dates: start: 20231108
  3. ADRIAMYCIN [Suspect]
     Active Substance: DOXORUBICIN HYDROCHLORIDE
     Indication: Breast cancer metastatic
     Dosage: 540 MG/M2, IN 6 COURSES, START DATE: NOV-2022, STOP DATE: APR-2023
     Route: 042

REACTIONS (2)
  - Ventricular dysfunction [Not Recovered/Not Resolved]
  - Ejection fraction decreased [Not Recovered/Not Resolved]

NARRATIVE: CASE EVENT DATE: 20240112
